FAERS Safety Report 8208399-5 (Version None)
Quarter: 2012Q1

REPORT INFORMATION
  Report Type: 
  Country: None (occurrence: None)
  Receive Date: 20120314
  Receipt Date: 20120305
  Transmission Date: 20120608
  Serious: Yes (Other)
  Sender: FDA-Public Use
  Company Number: CA-ASTRAZENECA-2012SE15374

PATIENT
  Age: 24 Year
  Sex: Female

DRUGS (6)
  1. ZOMIG [Suspect]
     Dosage: 1 TO 2 DOSES PER 24 HOUR AS NEEDED
     Route: 045
  2. OXYBUTYN [Concomitant]
     Indication: URINARY INCONTINENCE
     Route: 048
  3. NITROFURANTOIN [Concomitant]
     Indication: URINARY TRACT INFECTION
     Route: 048
  4. DOMPERIDONE [Concomitant]
     Indication: GASTRIC DISORDER
     Route: 048
  5. ZOMIG [Suspect]
     Indication: MIGRAINE
     Route: 048
  6. PANTOPRAZOLE [Concomitant]
     Indication: GASTRIC DISORDER
     Route: 048

REACTIONS (7)
  - TREMOR [None]
  - VOMITING [None]
  - HYPOAESTHESIA [None]
  - URINARY INCONTINENCE [None]
  - VERTIGO [None]
  - DYSPNOEA [None]
  - CONFUSIONAL STATE [None]
